FAERS Safety Report 4882632-X (Version None)
Quarter: 2006Q1

REPORT INFORMATION
  Report Type: 
  Country: None (occurrence: None)
  Receive Date: 20060117
  Receipt Date: 20050729
  Transmission Date: 20060701
  Serious: Yes (Hospitalization, Disabling, Other)
  Sender: FDA-Public Use
  Company Number: US-MERCK-0508USA00338

PATIENT
  Age: 70 Year
  Sex: Female
  Weight: 62 kg

DRUGS (2)
  1. VIOXX [Suspect]
     Indication: ARTHRITIS
     Route: 048
     Dates: start: 19991224
  2. VIOXX [Suspect]
     Route: 048
     Dates: start: 20021204, end: 20031007

REACTIONS (20)
  - ABDOMINAL PAIN [None]
  - ANXIETY [None]
  - BLADDER DISORDER [None]
  - CARDIAC ARREST [None]
  - CARDIAC OUTPUT DECREASED [None]
  - CHEST PAIN [None]
  - CORONARY ARTERY DISEASE [None]
  - DEPRESSION [None]
  - DYSPNOEA EXERTIONAL [None]
  - GALLBLADDER DISORDER [None]
  - HEART RATE INCREASED [None]
  - HEART RATE IRREGULAR [None]
  - HYPERLIPIDAEMIA [None]
  - HYPERTENSION [None]
  - MULTI-ORGAN DISORDER [None]
  - MYOCARDIAL INFARCTION [None]
  - PALPITATIONS [None]
  - POSTOPERATIVE INFECTION [None]
  - ROTATOR CUFF SYNDROME [None]
  - UTERINE DISORDER [None]
